FAERS Safety Report 12841465 (Version 2)
Quarter: 2016Q4

REPORT INFORMATION
  Report Type: Spontaneous
  Country: CH (occurrence: CH)
  Receive Date: 20161012
  Receipt Date: 20161017
  Transmission Date: 20170207
  Serious: Yes (Hospitalization, Other)
  Sender: FDA-Public Use
  Company Number: CH-ASTRAZENECA-2016SF05500

PATIENT
  Age: 651 Month
  Sex: Male

DRUGS (14)
  1. NEXIUM [Suspect]
     Active Substance: ESOMEPRAZOLE MAGNESIUM
     Dosage: 40.0MG UNKNOWN
     Route: 048
     Dates: start: 20160831, end: 20160831
  2. VOLTAREN [Suspect]
     Active Substance: DICLOFENAC SODIUM
     Dosage: 75.0MG UNKNOWN
     Route: 040
     Dates: start: 20160831, end: 20160831
  3. TEMESTA [Concomitant]
     Active Substance: LORAZEPAM
     Dosage: 2.5MG UNKNOWN
     Route: 060
     Dates: start: 20160831, end: 20160831
  4. EPHEDRIN [Concomitant]
     Active Substance: EPHEDRINE HYDROCHLORIDE
     Dosage: 15.0MG UNKNOWN
     Route: 041
     Dates: start: 20160831, end: 20160831
  5. CEFUROXIME. [Suspect]
     Active Substance: CEFUROXIME
     Indication: PROPHYLAXIS
     Dosage: 1.5G UNKNOWN
     Route: 040
     Dates: start: 20160831, end: 20160831
  6. DAFALGAN [Suspect]
     Active Substance: ACETAMINOPHEN
     Dosage: 1.0G UNKNOWN
     Route: 048
     Dates: start: 20160831, end: 20160831
  7. PROPOFOL. [Concomitant]
     Active Substance: PROPOFOL
     Dosage: 200.0MG UNKNOWN
     Route: 041
     Dates: start: 20160831, end: 20160831
  8. BUPIVACAIN + FENTANYL COMP [Concomitant]
     Active Substance: BUPIVACAINE HYDROCHLORIDE\FENTANYL CITRATE
     Route: 008
     Dates: start: 20160831, end: 20160831
  9. ROCURONIUM [Concomitant]
     Active Substance: ROCURONIUM BROMIDE
     Dosage: 50.0MG UNKNOWN
     Route: 041
     Dates: start: 20160831, end: 20160831
  10. TARGIN [Suspect]
     Active Substance: NALOXONE HYDROCHLORIDE\OXYCODONE HYDROCHLORIDE
     Dosage: 1.0DF UNKNOWN
     Route: 048
     Dates: start: 20160831, end: 20160904
  11. BRUFEN [Suspect]
     Active Substance: IBUPROFEN
     Route: 048
     Dates: start: 20160831, end: 20160831
  12. DEXAMETHASON [Concomitant]
     Active Substance: DEXAMETHASONE
     Dosage: 8.0MG UNKNOWN
     Route: 040
     Dates: start: 20160831, end: 20160831
  13. ZOFRAN [Concomitant]
     Active Substance: ONDANSETRON HYDROCHLORIDE
     Dosage: 4.0MG UNKNOWN
     Route: 040
     Dates: start: 20160831, end: 20160831
  14. TRAMAL [Concomitant]
     Active Substance: TRAMADOL
     Dosage: 50.0MG UNKNOWN
     Route: 048
     Dates: start: 20160901, end: 20160901

REACTIONS (2)
  - Acute generalised exanthematous pustulosis [Unknown]
  - Drug reaction with eosinophilia and systemic symptoms [Recovering/Resolving]

NARRATIVE: CASE EVENT DATE: 201609
